FAERS Safety Report 16381760 (Version 1)
Quarter: 2019Q2

REPORT INFORMATION
  Report Type: Report from Study
  Country: None (occurrence: US)
  Receive Date: 20190603
  Receipt Date: 20190603
  Transmission Date: 20190711
  Serious: Yes (Hospitalization)
  Sender: FDA-Public Use
  Company Number: US-ABBVIE-19S-163-2803756-00

PATIENT
  Age: 66 Year
  Sex: Male
  Weight: 87.17 kg

DRUGS (2)
  1. CREON [Suspect]
     Active Substance: PANCRELIPASE AMYLASE\PANCRELIPASE LIPASE\PANCRELIPASE PROTEASE
     Indication: PANCREATIC DISORDER
     Dosage: TWO CAPSULES WITH MEALS, ONE CAPSULE WITH SNACKS
     Route: 048
     Dates: start: 2018
  2. DILAUDID [Concomitant]
     Active Substance: HYDROMORPHONE HYDROCHLORIDE
     Indication: PAIN

REACTIONS (9)
  - Pancreatitis [Recovered/Resolved]
  - Pancreatic enzymes increased [Recovered/Resolved]
  - Pancreatic enzymes increased [Recovered/Resolved]
  - Pancreatitis relapsing [Recovered/Resolved]
  - Pancreatic disorder [Recovered/Resolved]
  - Pancreatitis relapsing [Recovered/Resolved]
  - Pancreatitis relapsing [Recovered/Resolved]
  - Pancreatic enzymes increased [Recovered/Resolved]
  - Pancreatic enzymes increased [Recovered/Resolved]

NARRATIVE: CASE EVENT DATE: 20180417
